FAERS Safety Report 4571410-7 (Version None)
Quarter: 2005Q1

REPORT INFORMATION
  Report Type: 
  Country: None (occurrence: None)
  Receive Date: 20050205
  Receipt Date: 20041021
  Transmission Date: 20050727
  Serious: Yes (Death, Hospitalization)
  Sender: FDA-Public Use
  Company Number: PHNU2004DE03604

PATIENT
  Age: 83 Year
  Sex: Male

DRUGS (5)
  1. DECORTIN [Suspect]
     Indication: IMMUNOSUPPRESSION
     Dosage: 7.5 MG/DAY
     Route: 048
  2. DURAGESIC [Suspect]
  3. ACETYLSALICYLIC ACID SRT [Concomitant]
     Dosage: 100 MG/DAY
     Route: 048
  4. PANTOZOL [Concomitant]
     Dosage: 20 MG/DAY
     Route: 048
  5. IMMUNOSPORIN [Suspect]
     Indication: RHEUMATOID ARTHRITIS
     Dosage: 100 MG, QD
     Route: 048
     Dates: start: 20040823, end: 20041012

REACTIONS (8)
  - BLOOD CREATININE INCREASED [None]
  - CACHEXIA [None]
  - DEHYDRATION [None]
  - DEPRESSED LEVEL OF CONSCIOUSNESS [None]
  - ENCEPHALITIS [None]
  - ENCEPHALOPATHY [None]
  - HERPES ZOSTER [None]
  - LYMPHOPENIA [None]
